FAERS Safety Report 8029782-7 (Version None)
Quarter: 2012Q1

REPORT INFORMATION
  Report Type: 
  Country: None (occurrence: None)
  Receive Date: 20120104
  Receipt Date: 20111219
  Transmission Date: 20120608
  Serious: Yes (Other)
  Sender: FDA-Public Use
  Company Number: FK201103080

PATIENT
  Age: 73 Year
  Sex: Male
  Weight: 67.5 kg

DRUGS (8)
  1. LEUCOVORIN CALCIUM [Suspect]
     Indication: METASTASIS
     Dates: start: 20081201, end: 20090601
  2. MOTILIUM [Concomitant]
  3. TEMESTA (LORAZEPAM) (LORAZEPAM) [Concomitant]
  4. PREDNISOLON (PREDNISOLONE) (PREDNISOLONE) [Concomitant]
  5. EMPERAL (METOCLOPRAMIDE HYDROCHLORIDE) (METOCLOPRAMIDE HYDROCHLORIDE) [Concomitant]
  6. OXALIPLATIN [Suspect]
     Indication: METASTASIS
     Dates: start: 20081201, end: 20090601
  7. FLUOROURACIL [Suspect]
     Indication: METASTASIS
     Dates: start: 20081201, end: 20090601
  8. ONDANSETRON [Concomitant]

REACTIONS (6)
  - POLYNEUROPATHY [None]
  - HYPOAESTHESIA [None]
  - BALANCE DISORDER [None]
  - COORDINATION ABNORMAL [None]
  - SENSORY DISTURBANCE [None]
  - MOTOR DYSFUNCTION [None]
